FAERS Safety Report 8651007 (Version 3)
Quarter: 2012Q4

REPORT INFORMATION
  Report Type: 
  Country: JP (occurrence: JP)
  Receive Date: 20120705
  Receipt Date: 20121107
  Transmission Date: 20130627
  Serious: No
  Sender: FDA-Public Use
  Company Number: JP-JNJFOC-20120700996

PATIENT
  Age: 83 Year
  Sex: Male
  Weight: 55 kg

DRUGS (7)
  1. TRAMCET [Suspect]
     Indication: PAIN
     Dosage: 1 per 1 day
     Route: 048
     Dates: start: 20111227, end: 20120624
  2. TRAMCET [Suspect]
     Indication: PAIN
     Dosage: 1 per 1 day
     Route: 048
     Dates: start: 20111216, end: 20111226
  3. TRAMCET [Suspect]
     Indication: PAIN
     Dosage: 1 per 1 day
     Route: 048
     Dates: start: 20120625, end: 20120626
  4. LYRICA [Suspect]
     Indication: PAIN
     Dosage: 1 per day
     Route: 048
     Dates: start: 20111216, end: 20120624
  5. LYRICA [Suspect]
     Indication: PAIN
     Dosage: 1 per day
     Route: 048
     Dates: start: 20110728, end: 20111215
  6. LYRICA [Suspect]
     Indication: PAIN
     Dosage: 2 per day
     Route: 048
     Dates: start: 20110721, end: 20110727
  7. NEUROTROPIN [Concomitant]
     Indication: PAIN
     Route: 050

REACTIONS (3)
  - Delirium [Recovered/Resolved]
  - Dizziness [Recovered/Resolved]
  - Insomnia [Recovered/Resolved]
